FAERS Safety Report 24581203 (Version 1)
Quarter: 2024Q4

REPORT INFORMATION
  Report Type: Spontaneous
  Country: US (occurrence: US)
  Receive Date: 20241105
  Receipt Date: 20241105
  Transmission Date: 20250114
  Serious: No
  Sender: IPSEN BIOPHARMACEUTICALS, INC.
  Company Number: US-IPSEN Group, Research and Development-2024-22205

PATIENT
  Age: 42 Year
  Sex: Male
  Weight: 52.16 kg

DRUGS (9)
  1. TAZVERIK [Suspect]
     Active Substance: TAZEMETOSTAT HYDROBROMIDE
     Indication: Soft tissue sarcoma
     Route: 048
     Dates: start: 20211025
  2. DOXYCYCLINE [Concomitant]
     Active Substance: DOXYCYCLINE
  3. GABAPENTIN [Concomitant]
     Active Substance: GABAPENTIN
  4. LORAZEPAM [Concomitant]
     Active Substance: LORAZEPAM
  5. ZOFRAN [Concomitant]
     Active Substance: ONDANSETRON HYDROCHLORIDE
  6. OXYCODONE [Concomitant]
     Active Substance: OXYCODONE
  7. PEPCID [Concomitant]
     Active Substance: FAMOTIDINE
  8. PROCHLORPERAZINE [Concomitant]
     Active Substance: PROCHLORPERAZINE
  9. VOLTAREN [Concomitant]
     Active Substance: DICLOFENAC SODIUM

REACTIONS (1)
  - Infected neoplasm [Not Recovered/Not Resolved]
